FAERS Safety Report 6377241-X (Version None)
Quarter: 2009Q3

REPORT INFORMATION
  Report Type: 
  Country: None (occurrence: None)
  Receive Date: 20090925
  Receipt Date: 20090911
  Transmission Date: 20100115
  Serious: Yes (Hospitalization)
  Sender: FDA-Public Use
  Company Number: B0592208A

PATIENT
  Sex: Female
  Weight: 70 kg

DRUGS (3)
  1. LAPATINIB [Suspect]
     Indication: BREAST CANCER
     Dosage: 1250MG PER DAY
     Route: 048
     Dates: start: 20090826, end: 20090906
  2. PACLITAXEL [Suspect]
     Indication: BREAST CANCER
     Dosage: 315MG EVERY 3 WEEKS
     Route: 042
     Dates: start: 20090826
  3. MYOCET [Suspect]
     Indication: BREAST CANCER
     Dosage: 107MG EVERY 3 WEEKS
     Route: 042
     Dates: start: 20090826

REACTIONS (3)
  - GENERAL PHYSICAL HEALTH DETERIORATION [None]
  - NEUTROPENIA [None]
  - PYREXIA [None]
